FAERS Safety Report 16233984 (Version 2)
Quarter: 2023Q2

REPORT INFORMATION
  Report Type: Spontaneous
  Country: LV (occurrence: LV)
  Receive Date: 20190424
  Receipt Date: 20230607
  Transmission Date: 20230721
  Serious: Yes (Other)
  Sender: FDA-Public Use
  Company Number: LV-ORION CORPORATION ORION PHARMA-LEV 2019-0003

PATIENT
  Sex: Female

DRUGS (22)
  1. MORPHINE SULFATE [Suspect]
     Active Substance: MORPHINE SULFATE
     Indication: Acute myocardial infarction
     Dosage: UNK
     Route: 064
     Dates: start: 2010
  2. MORPHINE SULFATE [Suspect]
     Active Substance: MORPHINE SULFATE
     Indication: Pulmonary embolism
     Dosage: UNK
     Route: 065
     Dates: start: 2010
  3. POTASSIUM CHLORIDE [Suspect]
     Active Substance: POTASSIUM CHLORIDE
     Indication: Pulmonary embolism
     Dosage: 7.45%
     Route: 064
     Dates: start: 2010
  4. POTASSIUM CHLORIDE [Suspect]
     Active Substance: POTASSIUM CHLORIDE
     Indication: Acute myocardial infarction
     Dosage: UNK
     Route: 065
     Dates: start: 2010
  5. MAGNESIUM SULFATE [Suspect]
     Active Substance: MAGNESIUM SULFATE
     Indication: Pulmonary embolism
     Dosage: UNK
     Route: 064
     Dates: start: 2010
  6. MAGNESIUM SULFATE [Suspect]
     Active Substance: MAGNESIUM SULFATE
     Indication: Acute myocardial infarction
     Dosage: UNK
     Route: 065
     Dates: start: 2010
  7. INTEGRILIN [Suspect]
     Active Substance: EPTIFIBATIDE
     Indication: Product used for unknown indication
     Dosage: 180 MG, SINGLE DOSE
     Route: 064
     Dates: start: 2010
  8. METOPROLOL [Suspect]
     Active Substance: METOPROLOL
     Indication: Acute myocardial infarction
     Dosage: UNK
     Route: 064
     Dates: start: 2010
  9. METOPROLOL [Suspect]
     Active Substance: METOPROLOL
     Indication: Pulmonary embolism
     Dosage: UNK
     Route: 065
     Dates: start: 2010
  10. NOREPINEPHRINE [Suspect]
     Active Substance: NOREPINEPHRINE
     Indication: Haemodynamic instability
     Dosage: 0.12 MCG/KG, MINUTE
     Route: 064
     Dates: start: 2010
  11. FONDAPARINUX [Suspect]
     Active Substance: FONDAPARINUX
     Indication: Product used for unknown indication
     Dosage: UNK
     Route: 064
     Dates: start: 2010
  12. HEPARIN [Suspect]
     Active Substance: HEPARIN SODIUM
     Indication: Product used for unknown indication
     Dosage: SINGLE DOSE 7000 DV
     Route: 065
     Dates: start: 2010
  13. HEPARIN [Suspect]
     Active Substance: HEPARIN SODIUM
     Indication: Pulmonary embolism
     Dosage: UNK
     Route: 064
     Dates: start: 2010
  14. HEPARIN [Suspect]
     Active Substance: HEPARIN SODIUM
     Indication: Acute myocardial infarction
     Dosage: UNK
     Route: 065
     Dates: start: 2010
  15. VISIPAQUE [Suspect]
     Active Substance: IODIXANOL
     Indication: Product used for unknown indication
     Dosage: 320
     Route: 064
     Dates: start: 2010
  16. ISOSORBIDE DINITRATE [Suspect]
     Active Substance: ISOSORBIDE DINITRATE
     Indication: Acute myocardial infarction
     Dosage: UNK
     Route: 064
     Dates: start: 2010
  17. ISOSORBIDE DINITRATE [Suspect]
     Active Substance: ISOSORBIDE DINITRATE
     Indication: Pulmonary embolism
     Dosage: UNK
     Route: 065
     Dates: start: 2010
  18. LEVOSIMENDAN [Suspect]
     Active Substance: LEVOSIMENDAN
     Indication: Haemodynamic instability
     Dosage: 0.1 MCG/KG, MINUTE
     Route: 064
     Dates: start: 2010
  19. DOBUTAMINE [Suspect]
     Active Substance: DOBUTAMINE HYDROCHLORIDE
     Indication: Haemodynamic instability
     Dosage: 5 MCG/KG, MINUTE
     Route: 064
     Dates: start: 2010
  20. DOBUTAMINE [Suspect]
     Active Substance: DOBUTAMINE HYDROCHLORIDE
     Dosage: UNK
     Route: 065
     Dates: start: 2010
  21. ASPIRIN [Suspect]
     Active Substance: ASPIRIN
     Indication: Product used for unknown indication
     Dosage: 500 MILLIGRAM, SINGLE DOSE
     Route: 064
     Dates: start: 2010
  22. OXYGEN [Suspect]
     Active Substance: OXYGEN
     Indication: Product used for unknown indication
     Dosage: SATURATED
     Route: 064
     Dates: start: 2010

REACTIONS (2)
  - Apgar score low [Unknown]
  - Foetal exposure during pregnancy [Unknown]

NARRATIVE: CASE EVENT DATE: 20100101
